FAERS Safety Report 14874029 (Version 1)
Quarter: 2018Q2

REPORT INFORMATION
  Report Type: Spontaneous
  Country: US (occurrence: US)
  Receive Date: 20180424
  Receipt Date: 20180424
  Transmission Date: 20180711
  Serious: Yes (Other)
  Sender: FDA-Public Use
  Company Number: None

PATIENT
  Age: 55 Year
  Sex: Female
  Weight: 65.25 kg

DRUGS (1)
  1. METHYLPHENIDATE ER [Suspect]
     Active Substance: METHYLPHENIDATE
     Indication: ATTENTION DEFICIT/HYPERACTIVITY DISORDER
     Dosage: ?          QUANTITY:30 TABLET(S);?
     Route: 048
     Dates: start: 20180101, end: 20180330

REACTIONS (7)
  - Drug ineffective [None]
  - Disturbance in attention [None]
  - Impaired driving ability [None]
  - Impaired work ability [None]
  - Palpitations [None]
  - Product substitution issue [None]
  - Therapeutic response shortened [None]

NARRATIVE: CASE EVENT DATE: 20180401
